FAERS Safety Report 8562561-0 (Version None)
Quarter: 2012Q3

REPORT INFORMATION
  Report Type: 
  Country: None (occurrence: None)
  Receive Date: 20120802
  Receipt Date: 20120709
  Transmission Date: 20120928
  Serious: No
  Sender: FDA-Public Use
  Company Number: US-AMGEN-USASP2012042152

PATIENT
  Age: 58 Year
  Sex: Female

DRUGS (1)
  1. ENBREL [Suspect]
     Indication: RHEUMATOID ARTHRITIS
     Dosage: 50 MG, QWK
     Dates: start: 20110421

REACTIONS (6)
  - UPPER-AIRWAY COUGH SYNDROME [None]
  - URINARY TRACT INFECTION [None]
  - COUGH [None]
  - SNEEZING [None]
  - HEADACHE [None]
  - CATARACT [None]
